FAERS Safety Report 9460755 (Version 2)
Quarter: 2013Q4

REPORT INFORMATION
  Report Type: Spontaneous
  Country: US (occurrence: US)
  Receive Date: 20130815
  Receipt Date: 20131209
  Transmission Date: 20140711
  Serious: Yes (Death)
  Sender: FDA-Public Use
  Company Number: US-GLAXOSMITHKLINE-A1037600A

PATIENT
  Age: 67 Year
  Sex: Female

DRUGS (8)
  1. TAFINLAR [Suspect]
     Indication: MALIGNANT MELANOMA
     Dosage: 150MG PER DAY
     Route: 048
     Dates: start: 20130711
  2. ACETAMIN [Concomitant]
  3. ALPRAZOLAM [Concomitant]
  4. MULTIVITAMIN [Concomitant]
  5. PROCHLORPERAZINE [Concomitant]
  6. RANITIDINE [Concomitant]
  7. VERELAN [Concomitant]
  8. VEMURAFENIB [Concomitant]

REACTIONS (1)
  - Death [Fatal]
